FAERS Safety Report 7014871-6 (Version None)
Quarter: 2010Q3

REPORT INFORMATION
  Report Type: 
  Country: None (occurrence: None)
  Receive Date: 20100927
  Receipt Date: 20100607
  Transmission Date: 20110219
  Serious: No
  Sender: FDA-Public Use
  Company Number: US-ASTRAZENECA-2010SE15978

PATIENT
  Age: 68 Year
  Sex: Female

DRUGS (5)
  1. ARIMIDEX [Suspect]
     Indication: BREAST CANCER
     Route: 048
     Dates: start: 20090301
  2. CRESTOR [Concomitant]
     Indication: BLOOD CHOLESTEROL
  3. ABILIFY [Concomitant]
  4. COZAAR [Concomitant]
     Indication: HYPERTENSION
  5. ASPIRIN [Concomitant]

REACTIONS (3)
  - COUGH [None]
  - DYSPHONIA [None]
  - VOCAL CORD PARALYSIS [None]
